FAERS Safety Report 18601944 (Version 1)
Quarter: 2020Q4

REPORT INFORMATION
  Report Type: Spontaneous
  Country: US (occurrence: US)
  Receive Date: 20201210
  Receipt Date: 20201210
  Transmission Date: 20210114
  Serious: Yes (Hospitalization)
  Sender: FDA-Public Use
  Company Number: US-TEVA-2020-US-1856826

PATIENT
  Sex: Female

DRUGS (1)
  1. ALBUTEROL SULFATE HFA TEVA [Suspect]
     Active Substance: ALBUTEROL SULFATE
     Dosage: FORM OF ADMIN: INHALER
     Route: 065

REACTIONS (5)
  - Pneumonia [Unknown]
  - Device malfunction [Unknown]
  - Incorrect dose administered [Unknown]
  - Condition aggravated [Unknown]
  - Device delivery system issue [Unknown]
